FAERS Safety Report 11112130 (Version 1)
Quarter: 2015Q2

REPORT INFORMATION
  Report Type: Spontaneous
  Country: GB (occurrence: GB)
  Receive Date: 20150514
  Receipt Date: 20150514
  Transmission Date: 20150821
  Serious: Yes (Other)
  Sender: FDA-Public Use
  Company Number: GB-AUROBINDO-AUR-APL-2015-04240

PATIENT
  Age: 35 Year
  Sex: Male
  Weight: 105 kg

DRUGS (4)
  1. NAPROXEN TABLETS 500 MG [Suspect]
     Active Substance: NAPROXEN
     Indication: PAIN IN EXTREMITY
     Dosage: 500 MG, TWO TIMES A DAY
     Route: 048
     Dates: start: 20150416, end: 20150419
  2. LEMSIP COLD + FLU [Concomitant]
     Indication: UPPER RESPIRATORY TRACT INFECTION
     Dosage: UNK
     Route: 048
     Dates: start: 201502, end: 201502
  3. CLENIL MODULITE [Concomitant]
     Active Substance: BECLOMETHASONE DIPROPIONATE
     Indication: ASTHMA
     Dosage: 400 ?G, TWO TIMES A DAY
     Route: 055
  4. VENTOLIN [Concomitant]
     Active Substance: ALBUTEROL SULFATE
     Indication: ASTHMA
     Dosage: 200 ?G, TWO TIMES A DAY
     Route: 055

REACTIONS (5)
  - Activities of daily living impaired [Unknown]
  - Skin infection [Recovering/Resolving]
  - Skin exfoliation [Unknown]
  - Cellulitis [Recovering/Resolving]
  - Wound secretion [Recovering/Resolving]

NARRATIVE: CASE EVENT DATE: 20150419
